FAERS Safety Report 21365306 (Version 1)
Quarter: 2022Q3

REPORT INFORMATION
  Report Type: 
  Country: None (occurrence: None)
  Receive Date: 20220922
  Receipt Date: 20220922
  Transmission Date: 20221027
  Serious: No
  Sender: FDA-Public Use
  Company Number: None

PATIENT
  Age: 30 Year
  Sex: Female

DRUGS (1)
  1. MYORISAN [Suspect]
     Active Substance: ISOTRETINOIN

REACTIONS (5)
  - Dry skin [Unknown]
  - Epistaxis [Unknown]
  - Headache [Unknown]
  - Nausea [Unknown]
  - Arthralgia [Unknown]
